FAERS Safety Report 9538541 (Version 3)
Quarter: 2013Q4

REPORT INFORMATION
  Report Type: Report from Study
  Country: AU (occurrence: AU)
  Receive Date: 20130920
  Receipt Date: 20131113
  Transmission Date: 20140711
  Serious: Yes (Other)
  Sender: FDA-Public Use
  Company Number: AU-JNJFOC-20120911302

PATIENT
  Age: 20 Year
  Sex: Female

DRUGS (3)
  1. REMICADE [Suspect]
     Indication: CROHN^S DISEASE
     Route: 042
     Dates: start: 20120920
  2. REMICADE [Suspect]
     Indication: CROHN^S DISEASE
     Dosage: INFUFION PERIOD WAS 2 HOUR.
     Route: 042
     Dates: start: 20120920
  3. REMICADE [Suspect]
     Indication: CROHN^S DISEASE
     Route: 042
     Dates: start: 20120906

REACTIONS (3)
  - Abortion spontaneous [Unknown]
  - Exposure during pregnancy [Recovered/Resolved]
  - Vomiting in pregnancy [Unknown]
